FAERS Safety Report 5652510-7 (Version None)
Quarter: 2008Q1

REPORT INFORMATION
  Report Type: 
  Country: None (occurrence: None)
  Receive Date: 20080306
  Receipt Date: 20080224
  Transmission Date: 20080703
  Serious: Yes (Hospitalization, Other)
  Sender: FDA-Public Use
  Company Number: US-KINGPHARMUSA00001-K200800252

PATIENT

DRUGS (11)
  1. EPIPEN [Suspect]
     Indication: ANAPHYLACTIC REACTION
     Dosage: UNK, SINGLE
     Dates: start: 20080205, end: 20080205
  2. EPIPEN [Suspect]
     Indication: DRUG HYPERSENSITIVITY
  3. MICARDIS [Concomitant]
     Indication: HYPERTENSION
     Dates: end: 20080201
  4. ZANTAC 150 [Concomitant]
     Indication: ANTACID THERAPY
     Dosage: 150 MG, BID
  5. ZYRTEC [Concomitant]
     Dosage: 10 MG, QD
  6. SINGULAIR [Concomitant]
     Indication: SINUS DISORDER
     Dosage: 10 MG, QD
  7. ESTRATEST [Concomitant]
     Indication: HORMONE REPLACEMENT THERAPY
     Dosage: 1 U 1/2 STRENGTH, BIW
  8. NASACORT AQ [Concomitant]
     Indication: MULTIPLE ALLERGIES
  9. SYNTHROID [Concomitant]
     Indication: HYPOTHYROIDISM
     Dosage: 50 MCG, UNK
     Dates: start: 20080201
  10. LEVOTHYROXINE SODIUM [Concomitant]
     Indication: HYPOTHYROIDISM
     Dates: end: 20080201
  11. NORVASC                            /00972401/ [Concomitant]
     Indication: HYPERTENSION
     Dosage: 5 MG, QD
     Dates: start: 20080201

REACTIONS (5)
  - ACCIDENTAL EXPOSURE [None]
  - INJECTION SITE ANAESTHESIA [None]
  - NAIL BED INJURY [None]
  - OXYGEN SATURATION DECREASED [None]
  - SHOCK [None]
